FAERS Safety Report 12139441 (Version 1)
Quarter: 2016Q1

REPORT INFORMATION
  Report Type: Report from Study
  Country: US (occurrence: US)
  Receive Date: 20160303
  Receipt Date: 20160303
  Transmission Date: 20160526
  Serious: Yes (Other)
  Sender: FDA-Public Use
  Company Number: US-ROCHE-1720153

PATIENT
  Age: 57 Year
  Sex: Male

DRUGS (2)
  1. AVASTIN [Suspect]
     Active Substance: BEVACIZUMAB
     Indication: HER-2 POSITIVE GASTRIC CANCER
     Dosage: 1L THERAPY
     Route: 065
  2. HERCEPTIN [Suspect]
     Active Substance: TRASTUZUMAB
     Indication: HER-2 POSITIVE GASTRIC CANCER
     Dosage: 1L THERAPY
     Route: 065

REACTIONS (2)
  - Metastases to central nervous system [Unknown]
  - Cardiac disorder [Unknown]
